FAERS Safety Report 9704956 (Version 3)
Quarter: 2013Q4

REPORT INFORMATION
  Report Type: Spontaneous
  Country: JP (occurrence: JP)
  Receive Date: 20131122
  Receipt Date: 20131223
  Transmission Date: 20140711
  Serious: Yes (Hospitalization)
  Sender: FDA-Public Use
  Company Number: JP-ASTELLAS-2013US012107

PATIENT
  Age: 58 Year
  Sex: Female

DRUGS (11)
  1. TARCEVA [Suspect]
     Indication: LUNG ADENOCARCINOMA
     Dosage: 150 MG, UID/QD
     Route: 048
     Dates: start: 20121212, end: 20130112
  2. TARCEVA [Suspect]
     Dosage: 150 MG, UID/QD
     Route: 048
     Dates: start: 20130124, end: 20130124
  3. WYPAX [Concomitant]
     Indication: ANXIETY
     Dosage: 0.5 MG, UID/QD
     Route: 048
     Dates: start: 20121221
  4. TAKEPRON [Concomitant]
     Indication: PRODUCT USED FOR UNKNOWN INDICATION
     Dosage: 15 MG, UID/QD
     Route: 048
     Dates: start: 20121203
  5. BETAMETHASONE [Concomitant]
     Indication: PRODUCT USED FOR UNKNOWN INDICATION
     Dosage: 3 MG, UNKNOWN/D
     Route: 065
     Dates: start: 20131203
  6. BETAMETHASONE [Concomitant]
     Dosage: 1 MG, UNKNOWN/D
     Route: 065
     Dates: start: 20121211
  7. BETAMETHASONE [Concomitant]
     Dosage: 2 MG, UNKNOWN/D
     Route: 065
     Dates: start: 20121215
  8. BETAMETHASONE [Concomitant]
     Dosage: 1.5 MG, UNKNOWN/D
     Route: 065
     Dates: start: 20121218
  9. BETAMETHASONE [Concomitant]
     Dosage: 1 MG, UNKNOWN/D
     Route: 065
     Dates: start: 20121221
  10. BETAMETHASONE [Concomitant]
     Dosage: 0.5 MG, UNKNOWN/D
     Route: 065
     Dates: start: 20121228
  11. BETAMETHASONE [Concomitant]
     Dosage: 1 MG, UNKNOWN/D
     Route: 065
     Dates: start: 20130114, end: 20130117

REACTIONS (8)
  - Febrile neutropenia [Recovered/Resolved]
  - Neutropenia [Recovered/Resolved]
  - Constipation [Unknown]
  - Insomnia [Unknown]
  - Liver disorder [Recovered/Resolved]
  - Rash [Recovered/Resolved]
  - Generalised erythema [Recovered/Resolved]
  - Pharyngitis [Unknown]
